FAERS Safety Report 20910727 (Version 1)
Quarter: 2022Q2

REPORT INFORMATION
  Report Type: Spontaneous
  Country: US (occurrence: None)
  Receive Date: 20220602
  Receipt Date: 20220602
  Transmission Date: 20220721
  Serious: Yes (Life-Threatening, Disabling)
  Sender: FDA-Public Use
  Company Number: None

PATIENT
  Age: 43 Year
  Sex: Female
  Weight: 90 kg

DRUGS (17)
  1. AJOVY [Suspect]
     Active Substance: FREMANEZUMAB-VFRM
     Indication: Migraine
     Dates: start: 20220601, end: 20220601
  2. Compazime Hydroxizine [Concomitant]
  3. BENADRYL [Concomitant]
     Active Substance: DIPHENHYDRAMINE HYDROCHLORIDE
  4. VENTOLIN [Concomitant]
     Active Substance: ALBUTEROL SULFATE
  5. LASIX [Concomitant]
     Active Substance: FUROSEMIDE
  6. Spironlactone [Concomitant]
  7. Liothyrine [Concomitant]
  8. FAMOTIDINE [Concomitant]
     Active Substance: FAMOTIDINE
  9. Symbcort [Concomitant]
  10. ellipta [Concomitant]
  11. TYLENOL [Concomitant]
     Active Substance: ACETAMINOPHEN
  12. MOTRIN [Concomitant]
     Active Substance: IBUPROFEN
  13. SINGULAIR [Concomitant]
     Active Substance: MONTELUKAST SODIUM
  14. LEVOTHYROXINE [Concomitant]
     Active Substance: LEVOTHYROXINE
  15. MOTEGRITY [Concomitant]
     Active Substance: PRUCALOPRIDE SUCCINATE
  16. VITAMIN D [Concomitant]
     Active Substance: VITAMIN D NOS
  17. METAMUCIL [Concomitant]
     Active Substance: PLANTAGO SEED

REACTIONS (4)
  - Dyspnoea [None]
  - Rash [None]
  - Chest discomfort [None]
  - Cough [None]

NARRATIVE: CASE EVENT DATE: 20220601
